FAERS Safety Report 4818425-9 (Version None)
Quarter: 2005Q4

REPORT INFORMATION
  Report Type: 
  Country: None (occurrence: None)
  Receive Date: 20051027
  Receipt Date: 20051013
  Transmission Date: 20060501
  Serious: No
  Sender: FDA-Public Use
  Company Number: HQWYE082018OCT05

PATIENT
  Age: 6 Year
  Sex: Male

DRUGS (5)
  1. REFACTO [Suspect]
     Indication: FACTOR VIII DEFICIENCY
     Dosage: SEE IMAGE, INTRAVENOUS
     Route: 042
     Dates: start: 20010416, end: 20011001
  2. REFACTO [Suspect]
     Indication: FACTOR VIII DEFICIENCY
     Dosage: SEE IMAGE, INTRAVENOUS
     Route: 042
     Dates: start: 20011101, end: 20020401
  3. REFACTO [Suspect]
     Indication: FACTOR VIII DEFICIENCY
     Dosage: SEE IMAGE, INTRAVENOUS
     Route: 042
     Dates: start: 20020501, end: 20030301
  4. REFACTO [Suspect]
     Indication: FACTOR VIII DEFICIENCY
     Dosage: SEE IMAGE, INTRAVENOUS
     Route: 042
     Dates: start: 20030415, end: 20040601
  5. REFACTO [Suspect]

REACTIONS (6)
  - ANTI FACTOR VIII ANTIBODY POSITIVE [None]
  - COAGULATION FACTOR VIII LEVEL DECREASED [None]
  - DRUG EFFECT DECREASED [None]
  - HAEMARTHROSIS [None]
  - PAIN [None]
  - VASCULAR ACCESS COMPLICATION [None]
